FAERS Safety Report 10956745 (Version 1)
Quarter: 2015Q1

REPORT INFORMATION
  Report Type: Spontaneous
  Country: US (occurrence: US)
  Receive Date: 20150326
  Receipt Date: 20150326
  Transmission Date: 20150721
  Serious: No
  Sender: FDA-Public Use
  Company Number: US-MYLANLABS-2014S1011161

PATIENT
  Sex: Female

DRUGS (1)
  1. EMSAM [Suspect]
     Active Substance: SELEGILINE
     Indication: DEPRESSION
     Dosage: 6 MG,QD
     Route: 062

REACTIONS (4)
  - Insomnia [Recovered/Resolved]
  - Anxiety [Recovered/Resolved]
  - Incorrect drug administration duration [Not Recovered/Not Resolved]
  - Feeling jittery [Recovered/Resolved]
